FAERS Safety Report 5404285-4 (Version None)
Quarter: 2007Q3

REPORT INFORMATION
  Report Type: 
  Country: None (occurrence: None)
  Receive Date: 20070802
  Receipt Date: 20070730
  Transmission Date: 20080115
  Serious: Yes (Hospitalization)
  Sender: FDA-Public Use
  Company Number: US-ASTRAZENECA-2007UW18349

PATIENT
  Age: 31 Year
  Sex: Female
  Weight: 74.8 kg

DRUGS (3)
  1. TOPROL-XL [Suspect]
     Indication: HYPERTENSION
     Route: 048
  2. TOPROL-XL [Suspect]
     Route: 048
     Dates: start: 20070701
  3. CEFPODOXIME PROXETIL [Concomitant]

REACTIONS (2)
  - COUGH [None]
  - DRUG INTOLERANCE [None]
